FAERS Safety Report 9984773 (Version 2)
Quarter: 2014Q1

REPORT INFORMATION
  Report Type: Report from Study
  Country: US (occurrence: US)
  Receive Date: 20140307
  Receipt Date: 20140307
  Transmission Date: 20141002
  Serious: Yes (Hospitalization, Other)
  Sender: FDA-Public Use
  Company Number: US-ABBVIE-14P-163-1203555-00

PATIENT
  Age: 79 Year
  Sex: Female

DRUGS (1)
  1. HUMIRA [Suspect]
     Indication: RHEUMATOID ARTHRITIS
     Route: 058
     Dates: start: 20130725

REACTIONS (11)
  - Cerebral atrophy [Unknown]
  - Escherichia sepsis [Recovering/Resolving]
  - Drug dose omission [Unknown]
  - Urinary tract infection [Unknown]
  - Mental status changes [Unknown]
  - Nephrolithiasis [Unknown]
  - Pyelocaliectasis [Not Recovered/Not Resolved]
  - Urinary tract inflammation [Unknown]
  - Nephrolithiasis [Unknown]
  - Diverticulum [Unknown]
  - Colitis [Unknown]
